FAERS Safety Report 8390164-X (Version None)
Quarter: 2012Q2

REPORT INFORMATION
  Report Type: 
  Country: None (occurrence: None)
  Receive Date: 20120529
  Receipt Date: 20120518
  Transmission Date: 20120825
  Serious: Yes (Life-Threatening, Hospitalization, Other)
  Sender: FDA-Public Use
  Company Number: FR-PFIZER INC-FR-WYE-G02519208

PATIENT
  Age: 34 Year
  Sex: Male
  Weight: 72 kg

DRUGS (14)
  1. LEVOLEUCOVORIN CALCIUM [Suspect]
     Dosage: 400 MG/M2 FOR 4 DAYS,EVERY 15 DAYS
     Route: 042
     Dates: start: 20080121, end: 20080101
  2. FLUOROURACIL [Suspect]
     Dosage: 800 MG/M2 FOR 4 DAYS,EVERY 15 DAYS
     Route: 042
     Dates: start: 20080320, end: 20081009
  3. ELOXATIN [Suspect]
     Dosage: 25 MG/M2 FOR 4 DAYS,EVERY 15 DAYS
     Route: 042
     Dates: start: 20080121, end: 20080101
  4. ERBITUX [Suspect]
     Indication: COLORECTAL CANCER METASTATIC
     Dosage: 500 MG/M2 FOR 4 DAYS,EVERY 15 DAYS
     Route: 042
     Dates: start: 20070801, end: 20070101
  5. ERBITUX [Suspect]
     Dosage: 500 MG/M2 FOR 4 DAYS,EVERY 15 DAYS
     Route: 042
     Dates: start: 20080121, end: 20080101
  6. LEVOLEUCOVORIN CALCIUM [Suspect]
     Dosage: 300 MG/M2 FOR 4 DAYS,EVERY 15 DAYS
     Route: 042
     Dates: start: 20080320, end: 20081009
  7. FLUOROURACIL [Suspect]
     Indication: COLORECTAL CANCER METASTATIC
     Dosage: 1000 MG/M2 FOR 4 DAYS,EVERY 15 DAYS
     Route: 042
     Dates: start: 20070505, end: 20070801
  8. IRINOTECAN HCL [Suspect]
     Indication: COLORECTAL CANCER METASTATIC
     Dosage: UNSPECIFIED  DOSE FOR 4 DAYS,EVERY 15 DAYS
     Route: 042
     Dates: start: 20080904, end: 20081009
  9. ELOXATIN [Suspect]
     Indication: COLORECTAL CANCER METASTATIC
     Dosage: 25 MG/M2 FOR 4 DAYS,EVERY 15 DAYS
     Route: 042
     Dates: start: 20070505, end: 20070801
  10. ERBITUX [Suspect]
     Dosage: 500 MG/M2 FOR 4 DAYS,EVERY 15 DAYS
     Route: 042
     Dates: start: 20080320, end: 20081009
  11. EMEND [Suspect]
     Indication: PROPHYLAXIS OF NAUSEA AND VOMITING
     Dosage: UNSPECIFIED DOSE FOR 4 DAYS,EVERY 15 DAYS
     Route: 042
     Dates: start: 20080904, end: 20081009
  12. LEVOLEUCOVORIN CALCIUM [Suspect]
     Indication: COLORECTAL CANCER METASTATIC
     Dosage: 400 MG/M2 FOR 4 DAYS,EVERY 15 DAYS
     Route: 042
     Dates: start: 20070505, end: 20070801
  13. FLUOROURACIL [Suspect]
     Dosage: 1000 MG/M2 FOR 4 DAYS,EVERY 15 DAYS
     Route: 042
     Dates: start: 20080121, end: 20080101
  14. ELOXATIN [Suspect]
     Dosage: 20 MG/M2; FREQUENCY UNSPECIFIED
     Route: 042
     Dates: start: 20080320, end: 20081009

REACTIONS (8)
  - COOMBS POSITIVE HAEMOLYTIC ANAEMIA [None]
  - SHOCK [None]
  - APLASIA PURE RED CELL [None]
  - THROMBOCYTOPENIA [None]
  - COMA [None]
  - MICROCYTIC ANAEMIA [None]
  - MULTI-ORGAN FAILURE [None]
  - ANAEMIA MACROCYTIC [None]
